FAERS Safety Report 8850633 (Version 3)
Quarter: 2013Q1

REPORT INFORMATION
  Report Type: Spontaneous
  Country: JP (occurrence: JP)
  Receive Date: 20121019
  Receipt Date: 20130131
  Transmission Date: 20140127
  Serious: Yes (Hospitalization, Other)
  Sender: FDA-Public Use
  Company Number: JP-ASTRAZENECA-2012SE41986

PATIENT
  Age: 20927 Day
  Sex: Female
  Weight: 46 kg

DRUGS (7)
  1. FASLODEX [Suspect]
     Indication: BREAST CANCER
     Dosage: 500MG ONCE IN 2-4 WEEKS
     Route: 030
     Dates: start: 20120123, end: 20120319
  2. SLOW-K [Suspect]
     Indication: HYPOKALAEMIA
     Route: 048
     Dates: start: 200710
  3. LASIX [Suspect]
     Indication: HYPERTENSION
     Route: 048
     Dates: start: 200710
  4. HYPEN [Suspect]
     Indication: BACK PAIN
     Route: 048
     Dates: start: 200710
  5. LYRICA [Suspect]
     Indication: BACK PAIN
     Route: 048
     Dates: start: 200710
  6. ACINON [Suspect]
     Indication: GASTRIC ULCER
     Route: 048
     Dates: start: 200710
  7. FERROMIA [Suspect]
     Indication: IRON DEFICIENCY ANAEMIA
     Route: 048
     Dates: start: 20120424

REACTIONS (2)
  - Iron deficiency anaemia [Recovered/Resolved]
  - Platelet count decreased [Recovered/Resolved]
